FAERS Safety Report 11536015 (Version 1)
Quarter: 2015Q3

REPORT INFORMATION
  Report Type: Spontaneous
  Country: FR (occurrence: FR)
  Receive Date: 20150922
  Receipt Date: 20150922
  Transmission Date: 20151125
  Serious: Yes (Death)
  Sender: FDA-Public Use
  Company Number: FR-BAYER-2015-362038

PATIENT
  Age: 1 Day
  Sex: Male
  Weight: 2 kg

DRUGS (1)
  1. MIRENA [Suspect]
     Active Substance: LEVONORGESTREL
     Dosage: UNK
     Route: 064
     Dates: end: 2014

REACTIONS (1)
  - Persistent foetal circulation [Fatal]

NARRATIVE: CASE EVENT DATE: 20150329
